FAERS Safety Report 15354893 (Version 1)
Quarter: 2018Q3

REPORT INFORMATION
  Report Type: Report from Study
  Country: CA (occurrence: CA)
  Receive Date: 20180906
  Receipt Date: 20180906
  Transmission Date: 20181010
  Serious: No
  Sender: FDA-Public Use
  Company Number: CA-ROCHE-2180382

PATIENT
  Sex: Female

DRUGS (1)
  1. OCREVUS [Suspect]
     Active Substance: OCRELIZUMAB
     Indication: RELAPSING-REMITTING MULTIPLE SCLEROSIS
     Dosage: 600MG EVERY 6 MONTH
     Route: 042
     Dates: start: 20180827

REACTIONS (3)
  - Ingrown hair [Not Recovered/Not Resolved]
  - Purulence [Not Recovered/Not Resolved]
  - Erythema [Not Recovered/Not Resolved]
